FAERS Safety Report 11378705 (Version 1)
Quarter: 2015Q3

REPORT INFORMATION
  Report Type: Spontaneous
  Country: US (occurrence: None)
  Receive Date: 20150812
  Receipt Date: 20150812
  Transmission Date: 20151125
  Serious: Yes (Hospitalization)
  Sender: FDA-Public Use
  Company Number: 2015US-101514

PATIENT
  Age: 77 Year
  Sex: Male

DRUGS (1)
  1. LEVETIRACTAM [Suspect]
     Active Substance: LEVETIRACETAM
     Indication: POST-TRAUMATIC EPILEPSY
     Route: 042

REACTIONS (6)
  - Agitation [None]
  - Disorientation [None]
  - Delirium [None]
  - Lethargy [None]
  - Speech disorder [None]
  - Altered state of consciousness [None]
